FAERS Safety Report 21417163 (Version 1)
Quarter: 2022Q4

REPORT INFORMATION
  Report Type: Spontaneous
  Country: US (occurrence: US)
  Receive Date: 20221006
  Receipt Date: 20221006
  Transmission Date: 20230112
  Serious: Yes (Other)
  Sender: FDA-Public Use
  Company Number: US-NOVARTISPH-NVSC2022US222736

PATIENT
  Age: 26 Year

DRUGS (6)
  1. TRAMETINIB [Suspect]
     Active Substance: TRAMETINIB
     Indication: Rosai-Dorfman syndrome
     Dosage: UNK
     Route: 065
  2. TRAMETINIB [Suspect]
     Active Substance: TRAMETINIB
     Indication: Erdheim-Chester disease
  3. COBIMETINIB [Suspect]
     Active Substance: COBIMETINIB
     Indication: Rosai-Dorfman syndrome
     Dosage: UNK
     Route: 065
  4. COBIMETINIB [Suspect]
     Active Substance: COBIMETINIB
     Indication: Erdheim-Chester disease
  5. VEMURAFENIB [Suspect]
     Active Substance: VEMURAFENIB
     Indication: Rosai-Dorfman syndrome
     Dosage: UNK
     Route: 065
  6. VEMURAFENIB [Suspect]
     Active Substance: VEMURAFENIB
     Indication: Erdheim-Chester disease

REACTIONS (4)
  - Erdheim-Chester disease [Unknown]
  - Malignant neoplasm progression [Unknown]
  - Rosai-Dorfman syndrome [Unknown]
  - Product use in unapproved indication [Unknown]
